FAERS Safety Report 20614187 (Version 1)
Quarter: 2022Q1

REPORT INFORMATION
  Report Type: Report from Study
  Country: BR (occurrence: BR)
  Receive Date: 20220320
  Receipt Date: 20220320
  Transmission Date: 20220423
  Serious: Yes (Hospitalization, Other)
  Sender: FDA-Public Use
  Company Number: BR-NOVARTISPH-NVSC2022BR050443

PATIENT
  Sex: Male
  Weight: 90 kg

DRUGS (5)
  1. TEGRETOL [Suspect]
     Active Substance: CARBAMAZEPINE
     Indication: Injury
     Dosage: 1 DOSAGE FORM, QD (EVERY NIGHT)
     Route: 065
     Dates: start: 1997
  2. TEGRETOL [Suspect]
     Active Substance: CARBAMAZEPINE
     Dosage: 3 DOSAGE FORM, QD
     Route: 048
     Dates: start: 1997
  3. TEGRETOL [Suspect]
     Active Substance: CARBAMAZEPINE
     Dosage: 2 DOSAGE FORM, QD
     Route: 048
  4. TEGRETOL [Suspect]
     Active Substance: CARBAMAZEPINE
     Dosage: 1 DOSAGE FORM, QD
     Route: 065
     Dates: end: 202202
  5. RIVOTRIL [Concomitant]
     Active Substance: CLONAZEPAM
     Indication: Anxiety disorder
     Dosage: 0.5 DOSAGE FORM, QD
     Route: 048
     Dates: start: 1997

REACTIONS (25)
  - Hypoaesthesia [Not Recovered/Not Resolved]
  - Feeling abnormal [Not Recovered/Not Resolved]
  - Joint swelling [Recovering/Resolving]
  - Lung disorder [Recovering/Resolving]
  - Cardiac flutter [Unknown]
  - Dyspnoea [Not Recovered/Not Resolved]
  - Cataract [Recovering/Resolving]
  - Fatigue [Not Recovered/Not Resolved]
  - Dysstasia [Not Recovered/Not Resolved]
  - Malaise [Not Recovered/Not Resolved]
  - Gait disturbance [Not Recovered/Not Resolved]
  - Peripheral swelling [Not Recovered/Not Resolved]
  - Joint stiffness [Recovering/Resolving]
  - Eye pain [Not Recovered/Not Resolved]
  - Onychomadesis [Not Recovered/Not Resolved]
  - Vision blurred [Not Recovered/Not Resolved]
  - Muscular weakness [Not Recovered/Not Resolved]
  - Rash macular [Recovering/Resolving]
  - Weight decreased [Not Recovered/Not Resolved]
  - Illness [Not Recovered/Not Resolved]
  - Nail discomfort [Not Recovered/Not Resolved]
  - Nail disorder [Not Recovered/Not Resolved]
  - Asthenia [Not Recovered/Not Resolved]
  - Palpitations [Not Recovered/Not Resolved]
  - Tremor [Not Recovered/Not Resolved]

NARRATIVE: CASE EVENT DATE: 20140101
